FAERS Safety Report 24841374 (Version 1)
Quarter: 2025Q1

REPORT INFORMATION
  Report Type: Spontaneous
  Country: US (occurrence: None)
  Receive Date: 20250114
  Receipt Date: 20250114
  Transmission Date: 20250409
  Serious: Yes (Hospitalization)
  Sender: FDA-CTU
  Company Number: None

PATIENT
  Age: 11 Year
  Sex: Female

DRUGS (11)
  1. VIGABATRIN [Suspect]
     Active Substance: VIGABATRIN
     Indication: Gastrooesophageal reflux disease
     Dates: start: 20190719
  2. BACLOFEN [Concomitant]
     Active Substance: BACLOFEN
  3. BENADRYL ALL LIQ 12.5/5ML [Concomitant]
  4. BUDESONIDE SUS 0.5MG/2 [Concomitant]
  5. CLONAZEPAM TAB 0.5MG [Concomitant]
  6. CLONIDINE TAB 0.1 MG [Concomitant]
  7. DIAST AT ACDL GEL 5-10MG [Concomitant]
  8. FLUORIDE CHW 0.5MG F [Concomitant]
  9. GAS RELIEF LIQ INFANTS [Concomitant]
  10. GLYCERIN PED SUP 1.2GM [Concomitant]
  11. IBUPROFEN SUS 100/5ML [Concomitant]

REACTIONS (1)
  - Pneumonia aspiration [None]

NARRATIVE: CASE EVENT DATE: 20241218
